FAERS Safety Report 10005443 (Version 1)
Quarter: 2014Q1

REPORT INFORMATION
  Report Type: Spontaneous
  Country: CA (occurrence: CA)
  Receive Date: 20140313
  Receipt Date: 20140313
  Transmission Date: 20141002
  Serious: Yes (Hospitalization, Other)
  Sender: FDA-Public Use
  Company Number: CA-009507513-1403CAN004834

PATIENT
  Sex: Female

DRUGS (5)
  1. SINGULAIR [Suspect]
     Indication: ASTHMA
     Dosage: 10 MG, QD
     Route: 048
     Dates: start: 20140120
  2. SINGULAIR [Suspect]
     Dosage: 10 MG, QD
     Route: 048
     Dates: start: 2010
  3. PREDNISONE [Concomitant]
     Dosage: 50 MG, UNK
  4. CLONAZEPAM [Concomitant]
  5. VALIUM [Concomitant]

REACTIONS (5)
  - Respiratory disorder [Recovering/Resolving]
  - Panic attack [Recovering/Resolving]
  - Aphasia [Recovering/Resolving]
  - Aphagia [Recovering/Resolving]
  - H1N1 influenza [Recovering/Resolving]
